FAERS Safety Report 4293963-9 (Version None)
Quarter: 2004Q1

REPORT INFORMATION
  Report Type: 
  Country: None (occurrence: None)
  Receive Date: 20040212
  Receipt Date: 20040127
  Transmission Date: 20041129
  Serious: Yes (Other)
  Sender: FDA-Public Use
  Company Number: 7372

PATIENT
  Sex: Male

DRUGS (4)
  1. MORPHINE [Suspect]
     Dosage: 0.26 MG/KG IM
     Route: 030
  2. MORPHINE [Suspect]
     Dosage: 0.14 MG/KG PU
  3. HYDROMORPHONE [Suspect]
     Dosage: 0.03 MG/KG PU
  4. NALOXONE [Suspect]
     Dosage: 0.14 MG/KG PU

REACTIONS (2)
  - DRUG WITHDRAWAL SYNDROME [None]
  - HYPERAESTHESIA [None]
